FAERS Safety Report 18295998 (Version 2)
Quarter: 2020Q4

REPORT INFORMATION
  Report Type: Spontaneous
  Country: DE (occurrence: DE)
  Receive Date: 20200922
  Receipt Date: 20201002
  Transmission Date: 20210113
  Serious: Yes (Hospitalization, Other)
  Sender: FDA-Public Use
  Company Number: DE-BAYER-2020-205161

PATIENT
  Age: 32 Year
  Sex: Female
  Weight: 60 kg

DRUGS (1)
  1. JAYDESS [Suspect]
     Active Substance: LEVONORGESTREL
     Dosage: 14 ?G/DAY, CONTINOUSLY
     Route: 015
     Dates: start: 20181101, end: 20200918

REACTIONS (8)
  - Drug ineffective [None]
  - Cardiovascular disorder [None]
  - Ectopic pregnancy with contraceptive device [None]
  - Intra-abdominal fluid collection [None]
  - Acute abdomen [None]
  - Abdominal pain lower [None]
  - Ruptured ectopic pregnancy [None]
  - Haemoperitoneum [None]

NARRATIVE: CASE EVENT DATE: 20200917
